FAERS Safety Report 10039122 (Version 1)
Quarter: 2014Q1

REPORT INFORMATION
  Report Type: Spontaneous
  Country: US (occurrence: US)
  Receive Date: 20140326
  Receipt Date: 20140326
  Transmission Date: 20141002
  Serious: Yes (Other)
  Sender: FDA-Public Use
  Company Number: PHEH2014US005518

PATIENT
  Sex: Female

DRUGS (4)
  1. RECLAST [Suspect]
     Dosage: 5 MG / 100ML
     Route: 042
  2. CALCIUM [Concomitant]
     Dosage: UNK
  3. VITAMIN D [Concomitant]
     Dosage: UNK
  4. NEXIUM [Concomitant]
     Dosage: UNK

REACTIONS (11)
  - Parkinsonism [Unknown]
  - Dyskinesia [Unknown]
  - Tremor [Unknown]
  - Joint swelling [Unknown]
  - Lumbar spinal stenosis [Unknown]
  - Skin discolouration [Unknown]
  - Pain [Unknown]
  - Pain in extremity [Unknown]
  - Musculoskeletal stiffness [Unknown]
  - Musculoskeletal pain [Unknown]
  - Fracture pain [Unknown]
